FAERS Safety Report 8312405-7 (Version None)
Quarter: 2012Q2

REPORT INFORMATION
  Report Type: 
  Country: None (occurrence: None)
  Receive Date: 20120425
  Receipt Date: 20120417
  Transmission Date: 20120825
  Serious: Yes (Other)
  Sender: FDA-Public Use
  Company Number: US-ABBOTT-12P-163-0915844-00

PATIENT
  Sex: Male
  Weight: 89.892 kg

DRUGS (7)
  1. HUMIRA [Suspect]
     Indication: PSORIATIC ARTHROPATHY
     Dates: start: 20090101, end: 20100901
  2. METHOTREXATE [Concomitant]
     Indication: PSORIATIC ARTHROPATHY
  3. PREDNISONE TAB [Concomitant]
     Indication: PSORIATIC ARTHROPATHY
  4. AMLODIPINE [Concomitant]
     Indication: HYPERTENSION
  5. FOLIC ACID [Concomitant]
     Indication: PSORIATIC ARTHROPATHY
  6. ZOCOR [Concomitant]
     Indication: BLOOD CHOLESTEROL INCREASED
  7. HUMIRA [Suspect]
     Dates: start: 20101201

REACTIONS (2)
  - UPPER RESPIRATORY TRACT INFECTION [None]
  - DACRYOSTENOSIS ACQUIRED [None]
